FAERS Safety Report 4717918-2 (Version None)
Quarter: 2005Q3

REPORT INFORMATION
  Report Type: 
  Country: None (occurrence: None)
  Receive Date: 20050718
  Receipt Date: 20050201
  Transmission Date: 20060218
  Serious: No
  Sender: FDA-Public Use
  Company Number: 2005000250

PATIENT
  Age: 76 Year
  Sex: Female
  Weight: 58.9676 kg

DRUGS (3)
  1. TARCEVA [Suspect]
     Indication: NON-SMALL CELL LUNG CANCER
     Dosage: 150 MG (QD), ORAL
     Route: 048
     Dates: start: 20050111
  2. METOPROLOL SUCCINATE [Concomitant]
  3. PAROXETINE HYDROCHLORIDE [Concomitant]

REACTIONS (3)
  - EYELID INFECTION [None]
  - RASH [None]
  - STAPHYLOCOCCAL INFECTION [None]
